FAERS Safety Report 18122844 (Version 1)
Quarter: 2020Q3

REPORT INFORMATION
  Report Type: Spontaneous
  Country: US (occurrence: US)
  Receive Date: 20200806
  Receipt Date: 20200806
  Transmission Date: 20201103
  Serious: Yes (Hospitalization, Other)
  Sender: FDA-Public Use
  Company Number: None

PATIENT
  Sex: Female

DRUGS (16)
  1. TAMSULOSIN [Concomitant]
     Active Substance: TAMSULOSIN
  2. DEXAMETHASON [Concomitant]
     Active Substance: DEXAMETHASONE
  3. BUPROPN HCL [Concomitant]
     Active Substance: BUPROPION HYDROCHLORIDE
  4. MECLIZINE [Concomitant]
     Active Substance: MECLIZINE HYDROCHLORIDE
  5. DULOXETINE. [Concomitant]
     Active Substance: DULOXETINE
  6. ESZOPICLONE. [Concomitant]
     Active Substance: ESZOPICLONE
  7. DRONABINOL. [Concomitant]
     Active Substance: DRONABINOL
  8. FLUOXETINE [Concomitant]
     Active Substance: FLUOXETINE HYDROCHLORIDE
  9. HYDROCO/APAP [Concomitant]
     Active Substance: ACETAMINOPHEN\HYDROCODONE
  10. TEMAZEPAM. [Concomitant]
     Active Substance: TEMAZEPAM
  11. TAFINLAR [Concomitant]
     Active Substance: DABRAFENIB MESYLATE
     Route: 048
  12. HYDROXYZ HCL [Concomitant]
     Active Substance: HYDROXYZINE HYDROCHLORIDE
  13. LEVETIRACETA [Concomitant]
     Active Substance: LEVETIRACETAM
  14. MEKINIST [Suspect]
     Active Substance: TRAMETINIB DIMETHYL SULFOXIDE
     Indication: NEOPLASM MALIGNANT
     Route: 048
  15. GABAPENTIN. [Concomitant]
     Active Substance: GABAPENTIN
  16. PREGABALIN. [Concomitant]
     Active Substance: PREGABALIN

REACTIONS (1)
  - Extra dose administered [None]
